FAERS Safety Report 20597301 (Version 4)
Quarter: 2022Q2

REPORT INFORMATION
  Report Type: Report from Study
  Country: FR (occurrence: FR)
  Receive Date: 20220315
  Receipt Date: 20220411
  Transmission Date: 20220720
  Serious: Yes (Death)
  Sender: FDA-Public Use
  Company Number: FR-PFM-2022-02160

PATIENT
  Age: 86 Year
  Sex: Female
  Weight: 52 kg

DRUGS (6)
  1. BINIMETINIB [Suspect]
     Active Substance: BINIMETINIB
     Indication: Non-small cell lung cancer metastatic
     Dosage: 45 MG, BID (2/DAY)
     Route: 048
     Dates: start: 20220124, end: 20220221
  2. BINIMETINIB [Suspect]
     Active Substance: BINIMETINIB
     Dosage: 15 MG, BID (2/DAY)
     Route: 048
     Dates: start: 20220221, end: 20220309
  3. ENCORAFENIB [Suspect]
     Active Substance: ENCORAFENIB
     Indication: Non-small cell lung cancer metastatic
     Dosage: 450 MG, QD (1/DAY)  DAILY
     Route: 048
     Dates: start: 20220124, end: 20220221
  4. ENCORAFENIB [Suspect]
     Active Substance: ENCORAFENIB
     Dosage: 300 MG, QD (1/DAY) DAILY
     Route: 048
     Dates: start: 20220221, end: 20220309
  5. ASPIRIN [Concomitant]
     Active Substance: ASPIRIN
     Indication: Cardiac myxoma
     Dosage: UNK
     Route: 065
     Dates: start: 2013, end: 20220308
  6. BISOPROLOL [Concomitant]
     Active Substance: BISOPROLOL
     Indication: Hypertension
     Dosage: UNK
     Route: 065
     Dates: start: 2013

REACTIONS (1)
  - Dyspnoea [Fatal]

NARRATIVE: CASE EVENT DATE: 20220309
